FAERS Safety Report 5447371-5 (Version None)
Quarter: 2007Q3

REPORT INFORMATION
  Report Type: 
  Country: None (occurrence: None)
  Receive Date: 20070905
  Receipt Date: 20070824
  Transmission Date: 20080115
  Serious: Yes (Other)
  Sender: FDA-Public Use
  Company Number: GXKR2007GB07362

PATIENT
  Age: 34 Year
  Sex: Female

DRUGS (1)
  1. CEFUROXIME [Suspect]
     Dosage: 7 ML, INTRAVENOUS
     Route: 042
     Dates: start: 20070723, end: 20070723

REACTIONS (2)
  - HYPOTENSION [None]
  - PARAESTHESIA [None]
